FAERS Safety Report 5701018-9 (Version None)
Quarter: 2008Q2

REPORT INFORMATION
  Report Type: 
  Country: None (occurrence: None)
  Receive Date: 20080410
  Receipt Date: 20080401
  Transmission Date: 20081010
  Serious: Yes (Hospitalization)
  Sender: FDA-Public Use
  Company Number: FR-WYE-G01331408

PATIENT
  Sex: Female
  Weight: 11.5 kg

DRUGS (2)
  1. ADVIL ENFANTS ET NOURRISSONS [Suspect]
     Indication: PYREXIA
     Dosage: ONE SINGLE DOSE
     Route: 048
     Dates: start: 20080113, end: 20080113
  2. PARACETAMOL [Concomitant]
     Indication: PYREXIA
     Dosage: UNKNOWN
     Route: 048
     Dates: start: 20080113

REACTIONS (5)
  - BLISTER [None]
  - LOBAR PNEUMONIA [None]
  - PLEURAL EFFUSION [None]
  - RASH MACULAR [None]
  - SUPERINFECTION BACTERIAL [None]
